FAERS Safety Report 8317376 (Version 2)
Quarter: 2012Q4

REPORT INFORMATION
  Report Type: 
  Country: US (occurrence: US)
  Receive Date: 20111230
  Receipt Date: 20121129
  Transmission Date: 20130627
  Serious: Yes (Congenital Anomaly, Other)
  Sender: FDA-Public Use
  Company Number: US-ELI_LILLY_AND_COMPANY-US201112006888

PATIENT
  Age: 0 Year
  Sex: Female

DRUGS (1)
  1. PROZAC [Suspect]
     Dosage: UNK
     Route: 064

REACTIONS (10)
  - Patent ductus arteriosus [Unknown]
  - Ventricular septal defect [Unknown]
  - Congenital tricuspid valve incompetence [Unknown]
  - Pulmonary valve stenosis [Unknown]
  - Bicuspid pulmonary valve [Unknown]
  - Bicuspid aortic valve [Unknown]
  - Congenital cardiovascular anomaly [Unknown]
  - Cleft lip and palate [Unknown]
  - Premature baby [Unknown]
  - Foetal exposure during pregnancy [Recovered/Resolved]
